FAERS Safety Report 13374064 (Version 1)
Quarter: 2017Q1

REPORT INFORMATION
  Report Type: Spontaneous
  Country: US (occurrence: US)
  Receive Date: 20170327
  Receipt Date: 20170327
  Transmission Date: 20170429
  Serious: No
  Sender: FDA-Public Use
  Company Number: US-MISSION PHARMACAL COMPANY-1064690

PATIENT
  Age: 31 Year
  Sex: Female

DRUGS (3)
  1. THIOLA [Suspect]
     Active Substance: TIOPRONIN
     Indication: CYSTINURIA
     Route: 065
     Dates: start: 20170226
  2. ALCOHOL. [Concomitant]
     Active Substance: ALCOHOL
  3. THIOLA [Concomitant]
     Active Substance: TIOPRONIN
     Dates: start: 20170226

REACTIONS (2)
  - Drug dose omission [Unknown]
  - Loss of consciousness [Recovered/Resolved with Sequelae]

NARRATIVE: CASE EVENT DATE: 20170317
